FAERS Safety Report 7585549-5 (Version None)
Quarter: 2011Q2

REPORT INFORMATION
  Report Type: 
  Country: None (occurrence: None)
  Receive Date: 20110624
  Receipt Date: 20110609
  Transmission Date: 20111010
  Serious: Yes (Hospitalization)
  Sender: FDA-Public Use
  Company Number: LTI2011A00127

PATIENT
  Sex: Female

DRUGS (1)
  1. COMPERACT (PIOGLITAZONE HYDROCHLORIDE, METFORMIN HYDROCHLORIDE) [Suspect]
     Indication: TYPE 2 DIABETES MELLITUS
     Dosage: 2 TAB (1 TAB., 2 IN 1 D)
     Route: 048
     Dates: start: 20101101, end: 20110503

REACTIONS (5)
  - AORTIC STENOSIS [None]
  - CARDIAC FAILURE [None]
  - CHOLELITHIASIS [None]
  - ABDOMINAL DISTENSION [None]
  - ACUTE PULMONARY OEDEMA [None]
